FAERS Safety Report 15560858 (Version 1)
Quarter: 2018Q4

REPORT INFORMATION
  Report Type: Spontaneous
  Country: US (occurrence: US)
  Receive Date: 20181023
  Receipt Date: 20181023
  Transmission Date: 20190205
  Serious: No
  Sender: FDA-Public Use
  Company Number: None

PATIENT
  Age: 22 Month
  Sex: Male

DRUGS (1)
  1. VIGABATRIN POWDER 500MG PAR [Suspect]
     Active Substance: VIGABATRIN
     Indication: PREMATURE BABY
     Dosage: ?          OTHER DOSE:500MG/1000MG;OTHER FREQUENCY:MORNING AND NIGHT;?
     Route: 048
     Dates: start: 20180804

REACTIONS (1)
  - Pyrexia [None]

NARRATIVE: CASE EVENT DATE: 20181005
